FAERS Safety Report 18053472 (Version 1)
Quarter: 2020Q3

REPORT INFORMATION
  Report Type: Spontaneous
  Country: US (occurrence: US)
  Receive Date: 20200721
  Receipt Date: 20200721
  Transmission Date: 20201103
  Serious: Yes (Other)
  Sender: FDA-Public Use
  Company Number: None

PATIENT
  Age: 76 Year
  Sex: Female
  Weight: 78.3 kg

DRUGS (1)
  1. PROLIA [Suspect]
     Active Substance: DENOSUMAB
     Indication: OSTEOPOROSIS
     Dosage: ?          OTHER FREQUENCY:EVERY SIX MONTHS;?
     Route: 058
     Dates: start: 20190607, end: 20200104

REACTIONS (7)
  - Scratch [None]
  - Fatigue [None]
  - Muscular weakness [None]
  - Blood urine present [None]
  - Asthenia [None]
  - Balance disorder [None]
  - Pruritus [None]

NARRATIVE: CASE EVENT DATE: 20200215
